FAERS Safety Report 9899004 (Version 1)
Quarter: 2014Q1

REPORT INFORMATION
  Report Type: Spontaneous
  Country: HU (occurrence: HU)
  Receive Date: 20140214
  Receipt Date: 20140214
  Transmission Date: 20141002
  Serious: Yes (Hospitalization)
  Sender: FDA-Public Use
  Company Number: HU-GLAXOSMITHKLINE-B0968978A

PATIENT
  Age: 54 Year
  Sex: Female

DRUGS (1)
  1. SERETIDE (50MCG/500MCG) [Suspect]
     Indication: PRODUCT USED FOR UNKNOWN INDICATION
     Dosage: 1PUFF TWICE PER DAY
     Route: 055
     Dates: start: 20090630, end: 20111208

REACTIONS (1)
  - Pulmonary tuberculosis [Recovered/Resolved]
